FAERS Safety Report 4934230-7 (Version None)
Quarter: 2006Q1

REPORT INFORMATION
  Report Type: 
  Country: None (occurrence: None)
  Receive Date: 20060307
  Receipt Date: 20060119
  Transmission Date: 20060701
  Serious: Yes (Hospitalization, Disabling)
  Sender: FDA-Public Use
  Company Number: JP-AVENTIS-200610179JP

PATIENT
  Age: 76 Year
  Sex: Female
  Weight: 43.15 kg

DRUGS (9)
  1. AMARYL [Suspect]
     Route: 048
  2. SYMMETREL [Concomitant]
     Route: 048
     Dates: start: 19960725, end: 20060118
  3. PANALDINE [Concomitant]
     Route: 048
     Dates: start: 19960725, end: 20060118
  4. NORVASC [Concomitant]
     Route: 048
     Dates: start: 20050217
  5. SEPAMIT [Concomitant]
     Route: 048
     Dates: start: 19960725
  6. MUCOSTA [Concomitant]
     Route: 048
     Dates: end: 20060118
  7. ARICEPT [Concomitant]
     Route: 048
     Dates: start: 20020404, end: 20060118
  8. DIOVAN [Concomitant]
     Route: 048
     Dates: start: 20040213
  9. CARDENALIN [Concomitant]
     Route: 048
     Dates: start: 20010209

REACTIONS (1)
  - HYPOGLYCAEMIC COMA [None]
